FAERS Safety Report 10070356 (Version 2)
Quarter: 2014Q2

REPORT INFORMATION
  Report Type: Spontaneous
  Country: JP (occurrence: JP)
  Receive Date: 20140410
  Receipt Date: 20140428
  Transmission Date: 20141212
  Serious: No
  Sender: FDA-Public Use
  Company Number: JP-PFIZER INC-2014099780

PATIENT
  Age: 42 Year
  Sex: Female

DRUGS (2)
  1. CHAMPIX [Suspect]
     Dosage: UNK
     Route: 048
  2. CHAMPIX [Suspect]
     Dosage: 1 MG, 2X/DAY
     Route: 048

REACTIONS (1)
  - Nausea [Unknown]
